FAERS Safety Report 12278298 (Version 1)
Quarter: 2016Q2

REPORT INFORMATION
  Report Type: Spontaneous
  Country: US (occurrence: US)
  Receive Date: 20160418
  Receipt Date: 20160418
  Transmission Date: 20160815
  Serious: Yes (Hospitalization, Other)
  Sender: FDA-Public Use
  Company Number: ADR-2015-01239

PATIENT
  Age: 59 Year
  Sex: Female

DRUGS (5)
  1. FENTANYL. [Suspect]
     Active Substance: FENTANYL
     Dosage: 286.71 MCG/DAY
     Route: 037
     Dates: start: 20150411
  2. MORPHINE [Suspect]
     Active Substance: MORPHINE
     Dosage: 18.525 MG/DAY
     Route: 037
     Dates: start: 20150411
  3. BACLOFEN. [Suspect]
     Active Substance: BACLOFEN
     Dosage: 57.34 MCG/DAY
     Route: 037
     Dates: start: 20150411
  4. INAPSINE [Suspect]
     Active Substance: DROPERIDOL
     Dosage: 0.11468 MG/DAY
     Route: 037
     Dates: start: 20150411
  5. CLONIDINE. [Suspect]
     Active Substance: CLONIDINE
     Dosage: 57.34 MCG/DAY
     Route: 037
     Dates: start: 20150411

REACTIONS (1)
  - Underdose [Recovered/Resolved]

NARRATIVE: CASE EVENT DATE: 20150414
